FAERS Safety Report 18059539 (Version 6)
Quarter: 2025Q2

REPORT INFORMATION
  Report Type: Spontaneous
  Country: US (occurrence: US)
  Receive Date: 20200723
  Receipt Date: 20250424
  Transmission Date: 20250717
  Serious: Yes (Other)
  Sender: PFIZER
  Company Number: US-PFIZER INC-2020280505

PATIENT
  Age: 70 Year
  Sex: Female
  Weight: 69.85 kg

DRUGS (2)
  1. XELJANZ [Suspect]
     Active Substance: TOFACITINIB CITRATE
     Indication: Rheumatoid arthritis
     Dosage: MORNING/EVENING
     Route: 048
  2. XELJANZ [Suspect]
     Active Substance: TOFACITINIB CITRATE
     Indication: Arthritis

REACTIONS (5)
  - Cataract [Unknown]
  - Keratoconus [Unknown]
  - Visual impairment [Not Recovered/Not Resolved]
  - Eye disorder [Unknown]
  - Drug dispensed to wrong patient [Unknown]
